FAERS Safety Report 4562878-0 (Version None)
Quarter: 2005Q1

REPORT INFORMATION
  Report Type: 
  Country: None (occurrence: None)
  Receive Date: 20050121
  Receipt Date: 20050112
  Transmission Date: 20050727
  Serious: Yes (Other)
  Sender: FDA-Public Use
  Company Number: CAP04000327

PATIENT
  Age: 50 Year
  Sex: Female
  Weight: 49.9 kg

DRUGS (6)
  1. ACTONEL [Suspect]
     Indication: OSTEOPOROSIS
     Dosage: 30 MG 1/WEEK ORAL
     Route: 048
     Dates: start: 20020901, end: 20030701
  2. ACTONEL [Suspect]
     Indication: OSTEOPOROSIS
     Dosage: 35 MG 1/WEEK ORAL
     Route: 048
     Dates: start: 20030701, end: 20041201
  3. SYNTHROID [Concomitant]
  4. PARLODEL [Concomitant]
  5. CALCIUM(CALCIUM) [Concomitant]
  6. VITAMIN D [Concomitant]

REACTIONS (5)
  - IMPAIRED HEALING [None]
  - INFECTION [None]
  - JAW DISORDER [None]
  - OSTEONECROSIS [None]
  - TOOTH EXTRACTION [None]
